FAERS Safety Report 8871739 (Version 2)
Quarter: 2013Q1

REPORT INFORMATION
  Report Type: Spontaneous
  Country: US (occurrence: US)
  Receive Date: 20121030
  Receipt Date: 20130114
  Transmission Date: 20140127
  Serious: No
  Sender: FDA-Public Use
  Company Number: US-009507513-1210USA003461

PATIENT
  Age: 20 None
  Sex: Female
  Weight: 58.5 kg

DRUGS (4)
  1. IMPLANON [Suspect]
     Indication: CONTRACEPTION
     Dosage: 1 ROD UP TO 3 YEARS
     Route: 059
     Dates: start: 20110211
  2. LORTAB [Concomitant]
  3. XANAX [Concomitant]
  4. FIORICET [Concomitant]

REACTIONS (6)
  - Hyperphagia [Unknown]
  - Chest pain [Unknown]
  - Acne [Unknown]
  - Somnolence [Unknown]
  - Abdominal pain [Unknown]
  - Metrorrhagia [Unknown]
